FAERS Safety Report 9013729 (Version 1)
Quarter: 2013Q1

REPORT INFORMATION
  Report Type: Spontaneous
  Country: US (occurrence: US)
  Receive Date: 20130115
  Receipt Date: 20130115
  Transmission Date: 20140127
  Serious: Yes (Hospitalization)
  Sender: FDA-Public Use
  Company Number: US-009507513-1301USA004199

PATIENT
  Age: 60 Year
  Sex: Male

DRUGS (4)
  1. SINGULAIR [Suspect]
     Dosage: UNK
     Dates: start: 20100209
  2. OCRELIZUMAB [Suspect]
     Indication: RHEUMATOID ARTHRITIS
     Dosage: UNK
     Route: 042
     Dates: start: 20100209
  3. LEVOTHYROXINE SODIUM [Suspect]
     Route: 048
  4. METHOTREXATE [Suspect]
     Dosage: TAKEN DURING DAY (TDD): 17.5 MG PER WEEK

REACTIONS (3)
  - Staphylococcal infection [Unknown]
  - Bacterial test positive [Unknown]
  - Pneumonia [Unknown]
